FAERS Safety Report 12288806 (Version 2)
Quarter: 2016Q2

REPORT INFORMATION
  Report Type: Spontaneous
  Country: US (occurrence: US)
  Receive Date: 20160421
  Receipt Date: 20160421
  Transmission Date: 20160815
  Serious: Yes (Other)
  Sender: FDA-Public Use
  Company Number: US-HOSPIRA-2848979

PATIENT
  Age: 45 Year
  Sex: Female
  Weight: 102 kg

DRUGS (2)
  1. UNASYN [Concomitant]
     Active Substance: AMPICILLIN SODIUM\SULBACTAM SODIUM
     Indication: CELLULITIS
     Route: 042
     Dates: start: 20150420
  2. VANCOMYCIN HYDROCHLORIDE. [Suspect]
     Active Substance: VANCOMYCIN HYDROCHLORIDE
     Indication: OSTEOMYELITIS
     Route: 042
     Dates: start: 20150415, end: 20150420

REACTIONS (3)
  - Acute kidney injury [Unknown]
  - Dehydration [Unknown]
  - Antibiotic level above therapeutic [Unknown]

NARRATIVE: CASE EVENT DATE: 20150420
